FAERS Safety Report 15821814 (Version 1)
Quarter: 2018Q4

REPORT INFORMATION
  Report Type: Spontaneous
  Country: US (occurrence: US)
  Receive Date: 20181217
  Receipt Date: 20181217
  Transmission Date: 20190205
  Serious: Yes (Hospitalization)
  Sender: FDA-Public Use
  Company Number: None

PATIENT
  Age: 18 Year
  Sex: Female
  Weight: 77.7 kg

DRUGS (5)
  1. CYTARABAINE INJECTION(CYTARABINE) [Suspect]
     Active Substance: CYTARABINE
  2. CYCLOPHOSPHAMI [Concomitant]
     Active Substance: CYCLOPHOSPHAMIDE
  3. ONCASPAR [Suspect]
     Active Substance: PEGASPARGASE
  4. MERCAPTOPURINE. [Suspect]
     Active Substance: MERCAPTOPURINE
  5. METHOTREXATE. [Suspect]
     Active Substance: METHOTREXATE

REACTIONS (2)
  - Grip strength decreased [None]
  - Musculoskeletal disorder [None]

NARRATIVE: CASE EVENT DATE: 20181211
